FAERS Safety Report 9122543 (Version 1)
Quarter: 2013Q1

REPORT INFORMATION
  Report Type: Spontaneous
  Country: US (occurrence: None)
  Receive Date: 20130130
  Receipt Date: 20130130
  Transmission Date: 20140127
  Serious: Yes (Death)
  Sender: FDA-Public Use
  Company Number: B0859544A

PATIENT
  Age: 66 Year
  Sex: Female

DRUGS (11)
  1. LITHIUM [Suspect]
     Route: 048
  2. CITALOPRAM [Suspect]
     Route: 048
  3. METHYLPHENIDATE HCL [Suspect]
     Route: 048
  4. ARIPIPRAZOLE [Suspect]
     Route: 048
  5. SIMVASTATIN [Suspect]
     Route: 048
  6. VALACICLOVIR HYDROCHLORIDE [Suspect]
     Route: 048
  7. DEXTROAMPHETAMINE HYDROCHLORIDE [Suspect]
     Route: 048
  8. HYDROCODONE [Suspect]
     Route: 048
  9. OXYCODONE [Suspect]
     Route: 048
  10. TRIAZOLAM [Suspect]
     Route: 048
  11. PARACETAMOL [Suspect]
     Route: 048

REACTIONS (3)
  - Completed suicide [None]
  - Cardiac arrest [None]
  - Respiratory arrest [None]
